APPROVED DRUG PRODUCT: GALANTAMINE HYDROBROMIDE
Active Ingredient: GALANTAMINE HYDROBROMIDE
Strength: EQ 16MG BASE
Dosage Form/Route: CAPSULE, EXTENDED RELEASE;ORAL
Application: A078189 | Product #002 | TE Code: AB
Applicant: BARR LABORATORIES INC
Approved: Sep 15, 2008 | RLD: No | RS: No | Type: RX